FAERS Safety Report 13769051 (Version 5)
Quarter: 2017Q4

REPORT INFORMATION
  Report Type: Spontaneous
  Country: US (occurrence: US)
  Receive Date: 20170719
  Receipt Date: 20171117
  Transmission Date: 20180320
  Serious: No
  Sender: FDA-Public Use
  Company Number: US-BAUSCH-BL-2016-023652

PATIENT
  Sex: Female

DRUGS (1)
  1. XIFAXAN [Suspect]
     Active Substance: RIFAXIMIN
     Indication: GASTROINTESTINAL BACTERIAL OVERGROWTH
     Route: 065
     Dates: start: 20160928, end: 201706

REACTIONS (6)
  - Abdominal pain upper [Unknown]
  - Off label use [Unknown]
  - Abdominal distension [Unknown]
  - Abdominal tenderness [Unknown]
  - Weight increased [Unknown]
  - Drug dose omission [Unknown]
